FAERS Safety Report 16673479 (Version 1)
Quarter: 2019Q3

REPORT INFORMATION
  Report Type: Spontaneous
  Country: GB (occurrence: GB)
  Receive Date: 20190806
  Receipt Date: 20190806
  Transmission Date: 20191004
  Serious: Yes (Other)
  Sender: FDA-Public Use
  Company Number: GB-PFIZER INC-2019331953

PATIENT
  Age: 20 Year
  Sex: Female
  Weight: 63.2 kg

DRUGS (2)
  1. SAYANA PRESS [Suspect]
     Active Substance: MEDROXYPROGESTERONE\MEDROXYPROGESTERONE ACETATE
     Dosage: UNK
     Route: 023
     Dates: start: 2017, end: 2018
  2. RESOLOR [Concomitant]
     Active Substance: PRUCALOPRIDE SUCCINATE

REACTIONS (1)
  - Skin indentation [Unknown]

NARRATIVE: CASE EVENT DATE: 201807
